FAERS Safety Report 10551517 (Version 1)
Quarter: 2014Q4

REPORT INFORMATION
  Report Type: Spontaneous
  Country: US (occurrence: None)
  Receive Date: 20141027
  Receipt Date: 20141027
  Transmission Date: 20150529
  Serious: Yes (Death)
  Sender: FDA-Public Use
  Company Number: INS201410-000221

PATIENT
  Age: 71 Year
  Sex: Male
  Weight: 56.69 kg

DRUGS (7)
  1. DECLOMYCIN (DECLOMYCIN) (DECLOMYCIN) [Concomitant]
  2. DOCUSATE (DIOCTYL SODIUM SULFOSUCCINATE) (DIOCTYL SODIUM SULFOSUCCINATE) [Concomitant]
  3. DOC-Q-LACE (DOCUSATE) (DOCUSATE) [Concomitant]
  4. DEXAMETHASONE (DEXAMETHASONE) (DEXAMETHASONE) [Concomitant]
     Active Substance: DEXAMETHASONE
  5. FENTANYL PATCH (FENTANYL) (FENTANYL) [Concomitant]
  6. SUBSYS [Suspect]
     Active Substance: FENTANYL
     Indication: BREAKTHROUGH PAIN
     Dosage: PRN
     Dates: start: 201410
  7. DIFLUCAN (FLUCONAZOLE) (FLUCONAZOLE) [Concomitant]

REACTIONS (2)
  - Malignant neoplasm progression [None]
  - Myocardial infarction [None]
